FAERS Safety Report 8572848 (Version 6)
Quarter: 2014Q3

REPORT INFORMATION
  Report Type: Report from Study
  Country: DE (occurrence: DE)
  Receive Date: 20120522
  Receipt Date: 20140730
  Transmission Date: 20150326
  Serious: Yes (Death, Life-Threatening, Hospitalization)
  Sender: FDA-Public Use
  Company Number: DE-BRISTOL-MYERS SQUIBB COMPANY-16583536

PATIENT
  Age: 71 Year
  Sex: Male
  Weight: 64.8 kg

DRUGS (6)
  1. CYTARABINE ARABINOSIDE [Suspect]
     Active Substance: CYTARABINE
     Indication: ACUTE MYELOID LEUKAEMIA
     Dosage: INTD 01APR12. RESUMED ON 25MAY12. FROM 25-29MAY12 1670MG
     Dates: start: 20120326
  2. TRAMADOL [Concomitant]
     Active Substance: TRAMADOL
     Indication: RADICULAR PAIN
     Route: 048
     Dates: start: 20130809, end: 20130917
  3. ASPIRIN. [Concomitant]
     Active Substance: ASPIRIN
     Indication: CORONARY ARTERY DISEASE
     Route: 048
     Dates: start: 20130809, end: 20130917
  4. BISOPROLOL [Concomitant]
     Active Substance: BISOPROLOL
     Indication: CORONARY ARTERY DISEASE
     Route: 048
     Dates: start: 20130809, end: 20130917
  5. SPRYCEL [Suspect]
     Active Substance: DASATINIB
     Indication: ACUTE MYELOID LEUKAEMIA
     Dosage: INTD 24APR12. RESUMED ON 30MAY12 10MG FROM 30MAY-20JUN12
     Dates: start: 20120402
  6. IBUPROFEN. [Concomitant]
     Active Substance: IBUPROFEN
     Indication: RADICULAR PAIN
     Route: 048
     Dates: start: 20130809, end: 20130917

REACTIONS (6)
  - Epilepsy [Recovered/Resolved]
  - Hypocalcaemia [Recovered/Resolved]
  - Haemorrhage [Recovered/Resolved]
  - Hypoxic-ischaemic encephalopathy [Not Recovered/Not Resolved]
  - Metastases to meninges [Fatal]
  - Infectious colitis [Recovered/Resolved]

NARRATIVE: CASE EVENT DATE: 20120503
